FAERS Safety Report 13561625 (Version 4)
Quarter: 2017Q3

REPORT INFORMATION
  Report Type: Report from Study
  Country: US (occurrence: US)
  Receive Date: 20170518
  Receipt Date: 20170925
  Transmission Date: 20171127
  Serious: Yes (Death, Hospitalization)
  Sender: FDA-Public Use
  Company Number: US-ACTELION-A-US2016-146015

PATIENT
  Age: 73 Year
  Sex: Male

DRUGS (5)
  1. OPSUMIT [Suspect]
     Active Substance: MACITENTAN
     Indication: PULMONARY ARTERIAL HYPERTENSION
     Dosage: UNK
     Route: 048
     Dates: start: 20160406, end: 20170505
  2. DILTIAZEM. [Concomitant]
     Active Substance: DILTIAZEM
  3. VELETRI [Suspect]
     Active Substance: EPOPROSTENOL
     Indication: PULMONARY ARTERIAL HYPERTENSION
     Dosage: 20 NG/KG, PER MIN
     Route: 042
     Dates: start: 20160104
  4. REVATIO [Concomitant]
     Active Substance: SILDENAFIL CITRATE
  5. WARFARIN [Concomitant]
     Active Substance: WARFARIN

REACTIONS (18)
  - Right ventricular failure [Fatal]
  - Weight increased [Fatal]
  - Pulmonary arterial hypertension [Fatal]
  - Headache [Unknown]
  - Atrial tachycardia [Unknown]
  - Acidosis [Fatal]
  - Pleural effusion [Unknown]
  - Abdominal discomfort [Unknown]
  - Pain in jaw [Unknown]
  - Therapy non-responder [Unknown]
  - Atrioventricular block second degree [Unknown]
  - Fluid overload [Fatal]
  - Swelling [Fatal]
  - Multiple organ dysfunction syndrome [Fatal]
  - Dyspnoea [Fatal]
  - Disease progression [Fatal]
  - Shock [Fatal]
  - Respiratory failure [Fatal]

NARRATIVE: CASE EVENT DATE: 20160901
